FAERS Safety Report 5905560-7 (Version None)
Quarter: 2008Q4

REPORT INFORMATION
  Report Type: 
  Country: None (occurrence: None)
  Receive Date: 20081001
  Receipt Date: 20081001
  Transmission Date: 20090506
  Serious: No
  Sender: FDA-Public Use
  Company Number: None

PATIENT
  Age: 60 Year
  Sex: Male

DRUGS (1)
  1. ZOLPIDEM [Suspect]
     Indication: SLEEP DISORDER
     Dosage: 10 MG AT BEDTIME PO
     Route: 048
     Dates: start: 20020101

REACTIONS (6)
  - BACK PAIN [None]
  - DEHYDRATION [None]
  - DEPRESSION [None]
  - HEADACHE [None]
  - SLEEP DISORDER [None]
  - SYNCOPE [None]
